FAERS Safety Report 22330780 (Version 4)
Quarter: 2023Q2

REPORT INFORMATION
  Report Type: Report from Study
  Country: CN (occurrence: None)
  Receive Date: 20230517
  Receipt Date: 20230628
  Transmission Date: 20230721
  Serious: Yes (Hospitalization)
  Sender: FDA-Public Use
  Company Number: CN-ROCHE-3350035

PATIENT
  Age: 66 Year
  Sex: Male

DRUGS (4)
  1. ATEZOLIZUMAB [Suspect]
     Active Substance: ATEZOLIZUMAB
     Indication: Neoplasm
     Dosage: MOST RECENT DOSE OF ATEZOLIZUMAB ON 11/APR/2023
     Route: 041
     Dates: start: 20230411, end: 20230411
  2. ATEZOLIZUMAB [Suspect]
     Active Substance: ATEZOLIZUMAB
     Dosage: MOST RECENT DOSE OF ATEZOLIZUMAB ON 11/APR/2023
     Route: 041
     Dates: start: 20230505
  3. OMEPRAZOLE [Concomitant]
     Active Substance: OMEPRAZOLE
     Route: 041
     Dates: start: 20230502
  4. GLYCERINE ENEMA [Concomitant]
     Dates: start: 20230502, end: 20230502

REACTIONS (1)
  - Hepatic function abnormal [Recovered/Resolved]

NARRATIVE: CASE EVENT DATE: 20230503
